FAERS Safety Report 7516954-0 (Version None)
Quarter: 2011Q2

REPORT INFORMATION
  Report Type: 
  Country: None (occurrence: None)
  Receive Date: 20110601
  Receipt Date: 20110517
  Transmission Date: 20111010
  Serious: Yes (Other)
  Sender: FDA-Public Use
  Company Number: GB-WATSON-2011-06925

PATIENT
  Sex: Female

DRUGS (2)
  1. ATENOLOL [Suspect]
     Indication: PRODUCT USED FOR UNKNOWN INDICATION
     Dosage: UNK
     Route: 065
  2. VALSARTAN [Suspect]
     Indication: PRODUCT USED FOR UNKNOWN INDICATION
     Dosage: UNK
     Route: 065

REACTIONS (4)
  - OLIGOHYDRAMNIOS [None]
  - DRUG EXPOSURE DURING PREGNANCY [None]
  - CONGENITAL ANOMALY IN OFFSPRING [None]
  - MATERNAL DRUGS AFFECTING FOETUS [None]
